FAERS Safety Report 16399212 (Version 5)
Quarter: 2019Q3

REPORT INFORMATION
  Report Type: Spontaneous
  Country: US (occurrence: US)
  Receive Date: 20190606
  Receipt Date: 20190820
  Transmission Date: 20191004
  Serious: Yes (Hospitalization, Other)
  Sender: FDA-Public Use
  Company Number: US-BAYER-2019-107094

PATIENT
  Age: 30 Year
  Sex: Female
  Weight: 64.9 kg

DRUGS (21)
  1. AMBRISENTAN [Suspect]
     Active Substance: AMBRISENTAN
     Indication: MIXED CONNECTIVE TISSUE DISEASE
     Dosage: 10 MG, QD
     Route: 065
     Dates: start: 20190513
  2. HEPARIN [Concomitant]
     Active Substance: HEPARIN SODIUM
     Dosage: UNK
  3. GABAPENTIN. [Concomitant]
     Active Substance: GABAPENTIN
     Dosage: UNK
  4. SENNA ACUTIFOLIA [Concomitant]
     Dosage: UNK
  5. AMBRISENTAN [Suspect]
     Active Substance: AMBRISENTAN
     Indication: PULMONARY HYPERTENSION
     Dosage: 5 MG, QD
     Route: 065
     Dates: start: 20190509
  6. LASIX [Concomitant]
     Active Substance: FUROSEMIDE
     Dosage: UNK
  7. RITUXIMAB. [Concomitant]
     Active Substance: RITUXIMAB
     Dosage: UNK
  8. POLYETHYLENE GLYCOL [Concomitant]
     Active Substance: POLYETHYLENE GLYCOLS
     Dosage: UNK
  9. IBUPROFEN. [Concomitant]
     Active Substance: IBUPROFEN
     Dosage: UNK
  10. HYDROXYCHLOROQUINE [Concomitant]
     Active Substance: HYDROXYCHLOROQUINE
     Dosage: UNK
  11. CHOLECALCIFEROL [Concomitant]
     Active Substance: CHOLECALCIFEROL
     Dosage: UNK
  12. LIDOCAINE. [Concomitant]
     Active Substance: LIDOCAINE
     Dosage: UNK
  13. ADEMPAS [Suspect]
     Active Substance: RIOCIGUAT
     Indication: PULMONARY HYPERTENSION
     Dosage: 2 MG, TID
     Route: 065
     Dates: start: 20190409
  14. PANTOPRAZOLE [Concomitant]
     Active Substance: PANTOPRAZOLE
     Dosage: UNK
  15. DULOXETINE. [Concomitant]
     Active Substance: DULOXETINE
     Dosage: UNK
  16. AMBRISENTAN [Suspect]
     Active Substance: AMBRISENTAN
     Indication: PULMONARY HYPERTENSION
     Dosage: 5 MG, QD
     Route: 048
  17. TRAMADOL. [Concomitant]
     Active Substance: TRAMADOL
     Dosage: UNK
  18. DOCUSATE [Concomitant]
     Active Substance: DOCUSATE
     Dosage: UNK
  19. PREDNISONE. [Concomitant]
     Active Substance: PREDNISONE
     Dosage: UNK
  20. SPIRONOLACTONE. [Concomitant]
     Active Substance: SPIRONOLACTONE
     Dosage: UNK
  21. ACETAMINOPHEN. [Concomitant]
     Active Substance: ACETAMINOPHEN
     Dosage: UNK

REACTIONS (6)
  - Oedema [None]
  - Cellulitis [Not Recovered/Not Resolved]
  - Fluid overload [Recovered/Resolved]
  - Dyspnoea exertional [Not Recovered/Not Resolved]
  - Syncope [None]
  - Drug ineffective [Not Recovered/Not Resolved]

NARRATIVE: CASE EVENT DATE: 2019
